FAERS Safety Report 17892173 (Version 1)
Quarter: 2020Q2

REPORT INFORMATION
  Report Type: Report from Study
  Country: US (occurrence: US)
  Receive Date: 20200612
  Receipt Date: 20200612
  Transmission Date: 20200714
  Serious: No
  Sender: FDA-Public Use
  Company Number: US-AGIOS-2006US01965

PATIENT
  Sex: Female
  Weight: 41 kg

DRUGS (1)
  1. TIBSOVO [Suspect]
     Active Substance: IVOSIDENIB
     Indication: ACUTE MYELOID LEUKAEMIA
     Dosage: 250 MILLIGRAM, 2 TABLETS (500 MILLIGRAM), QD
     Route: 048
     Dates: start: 20191109

REACTIONS (2)
  - Weight increased [Unknown]
  - Stress [Unknown]
